FAERS Safety Report 10523177 (Version 1)
Quarter: 2014Q4

REPORT INFORMATION
  Report Type: Spontaneous
  Country: KR (occurrence: KR)
  Receive Date: 20141016
  Receipt Date: 20141016
  Transmission Date: 20150528
  Serious: Yes (Other)
  Sender: FDA-Public Use
  Company Number: KR-OTSUKA-US-2014-13125

PATIENT

DRUGS (5)
  1. DACOGEN [Suspect]
     Active Substance: DECITABINE
     Indication: MYELODYSPLASTIC SYNDROME
     Dosage: 20 MG/M2, DAILY DOSE
     Route: 042
     Dates: start: 20110905, end: 20110909
  2. DACOGEN [Suspect]
     Active Substance: DECITABINE
     Dosage: 20 MG/M2, DAILY DOSE
     Route: 042
     Dates: start: 20111219, end: 20111223
  3. DACOGEN [Suspect]
     Active Substance: DECITABINE
     Dosage: 20 MG/M2, DAILY DOSE
     Route: 042
     Dates: start: 20111004, end: 20111008
  4. DACOGEN [Suspect]
     Active Substance: DECITABINE
     Dosage: 20 MG/M2, DAILY DOSE
     Route: 042
     Dates: start: 20111115, end: 20111118
  5. DACOGEN [Suspect]
     Active Substance: DECITABINE
     Dosage: 20 MG/M2, DAILY DOSE
     Route: 042
     Dates: start: 20111121, end: 20111121

REACTIONS (3)
  - Diverticulitis [Recovered/Resolved]
  - Otitis media [Not Recovered/Not Resolved]
  - Pneumonia [Recovered/Resolved]

NARRATIVE: CASE EVENT DATE: 20111031
